FAERS Safety Report 14142652 (Version 1)
Quarter: 2017Q4

REPORT INFORMATION
  Report Type: Spontaneous
  Country: US (occurrence: US)
  Receive Date: 20171030
  Receipt Date: 20171030
  Transmission Date: 20180321
  Serious: No
  Sender: FDA-Public Use
  Company Number: US-BAYER-2015-050635

PATIENT
  Age: 85 Year
  Sex: Male
  Weight: 73 kg

DRUGS (3)
  1. MACROGOL 3350 [Suspect]
     Active Substance: POLYETHYLENE GLYCOL 3350
     Indication: GASTROINTESTINAL DISORDER
     Dosage: 1 CAP FULL EVERY DAY
     Route: 048
  2. PRESERVISION EYE VITAMIN AND MINERAL SUPPL. [Concomitant]
  3. MACROGOL 3350 [Suspect]
     Active Substance: POLYETHYLENE GLYCOL 3350
     Indication: PRODUCT USED FOR UNKNOWN INDICATION
     Dosage: UNK
     Route: 048

REACTIONS (4)
  - Product use issue [Unknown]
  - Circumstance or information capable of leading to medication error [Unknown]
  - Inappropriate schedule of drug administration [Unknown]
  - Off label use [Unknown]
